FAERS Safety Report 9636270 (Version 2)
Quarter: 2013Q4

REPORT INFORMATION
  Report Type: Spontaneous
  Country: DE (occurrence: DE)
  Receive Date: 20131021
  Receipt Date: 20131219
  Transmission Date: 20140711
  Serious: Yes (Other)
  Sender: FDA-Public Use
  Company Number: DE-UCBSA-100859

PATIENT
  Sex: Female

DRUGS (6)
  1. KEPPRA [Suspect]
     Indication: EPILEPSY
     Route: 048
  2. TOPAMAX [Concomitant]
     Indication: EPILEPSY
  3. TRILEPTAL [Concomitant]
     Indication: EPILEPSY
  4. TRILEPTAL [Concomitant]
     Indication: EPILEPSY
  5. TAVOR [Concomitant]
     Indication: EPILEPSY
  6. FOLSAN [Concomitant]
     Indication: PROPHYLAXIS

REACTIONS (3)
  - Abortion spontaneous [Unknown]
  - Overdose [Unknown]
  - Pregnancy [Recovered/Resolved]
